FAERS Safety Report 9496514 (Version 2)
Quarter: 2013Q3

REPORT INFORMATION
  Report Type: Report from Study
  Country: HN (occurrence: HN)
  Receive Date: 20130904
  Receipt Date: 20130905
  Transmission Date: 20140515
  Serious: Yes (Death, Other)
  Sender: FDA-Public Use
  Company Number: PHHY2013HN096036

PATIENT
  Sex: Female

DRUGS (8)
  1. GLIVEC [Suspect]
     Indication: CHRONIC MYELOID LEUKAEMIA
     Dosage: 400 MG, QD
     Route: 048
     Dates: start: 20090216
  2. GLIVEC [Suspect]
     Dosage: 800 MG, QD
     Route: 048
     Dates: start: 20100819
  3. GLIVEC [Suspect]
     Dosage: 400 MG, QD
     Route: 048
  4. GLIVEC [Suspect]
     Dosage: 600 MG, QD
     Route: 048
     Dates: start: 20110404
  5. GLIVEC [Suspect]
     Dosage: 400 MG, QD
     Route: 048
  6. AMLODIPINE [Concomitant]
     Indication: HYPERTENSION
     Dosage: 10 MG, QD
     Route: 048
  7. HIPERLIPEN [Concomitant]
     Dosage: 100 MG, QD
     Route: 048
  8. OXACILIN [Concomitant]
     Dosage: 2 MG, QID
     Route: 042
     Dates: start: 20130611, end: 20130618

REACTIONS (4)
  - Cardiac arrest [Fatal]
  - Diabetes mellitus [Not Recovered/Not Resolved]
  - Platelet count increased [Unknown]
  - Leukocytosis [Unknown]
